FAERS Safety Report 17694288 (Version 2)
Quarter: 2020Q2

REPORT INFORMATION
  Report Type: Report from Study
  Country: GB (occurrence: GB)
  Receive Date: 20200422
  Receipt Date: 20200521
  Transmission Date: 20200714
  Serious: Yes (Other)
  Sender: FDA-Public Use
  Company Number: NVSC2020GB107334

PATIENT
  Sex: Female

DRUGS (1)
  1. COSENTYX [Suspect]
     Active Substance: SECUKINUMAB
     Indication: ANKYLOSING SPONDYLITIS
     Dosage: 150 MG, QMO
     Route: 058
     Dates: start: 2019

REACTIONS (11)
  - Dyspnoea [Unknown]
  - Asthenia [Unknown]
  - Oropharyngeal pain [Unknown]
  - Presyncope [Unknown]
  - Cough [Recovering/Resolving]
  - Burning sensation [Unknown]
  - Syncope [Unknown]
  - Dizziness [Unknown]
  - Paraesthesia [Unknown]
  - Coronavirus infection [Unknown]
  - Chest discomfort [Unknown]
